FAERS Safety Report 6539489-0 (Version None)
Quarter: 2010Q1

REPORT INFORMATION
  Report Type: 
  Country: None (occurrence: None)
  Receive Date: 20100115
  Receipt Date: 20100113
  Transmission Date: 20100710
  Serious: Yes (Other)
  Sender: FDA-Public Use
  Company Number: A0839201A

PATIENT
  Sex: Female

DRUGS (5)
  1. ADVAIR DISKUS 100/50 [Suspect]
     Indication: ASTHMA
     Dosage: 1PUFF PER DAY
     Route: 055
  2. PROAIR HFA [Suspect]
     Dosage: 2PUFF AS REQUIRED
     Route: 055
  3. LORATADINE [Suspect]
     Indication: PRURITUS
     Dosage: 1TAB SINGLE DOSE
     Route: 048
  4. CARISOPRODOL [Concomitant]
  5. TRIAZOLAM [Concomitant]

REACTIONS (5)
  - ADVERSE EVENT [None]
  - ASTHMA [None]
  - PRURITUS [None]
  - STOMATITIS [None]
  - THROAT TIGHTNESS [None]
